FAERS Safety Report 5284513-9 (Version None)
Quarter: 2007Q2

REPORT INFORMATION
  Report Type: 
  Country: None (occurrence: None)
  Receive Date: 20070403
  Receipt Date: 20070327
  Transmission Date: 20071010
  Serious: Yes (Hospitalization, Other)
  Sender: FDA-Public Use
  Company Number: BE-AVENTIS-200711288GDDC

PATIENT
  Age: 61 Year
  Sex: Female

DRUGS (9)
  1. DOCETAXEL [Suspect]
     Indication: NON-SMALL CELL LUNG CANCER
     Route: 042
     Dates: start: 20070104, end: 20070104
  2. CISPLATIN [Suspect]
     Indication: NON-SMALL CELL LUNG CANCER
     Route: 042
     Dates: start: 20070104, end: 20070104
  3. LENDORMIN [Concomitant]
     Dates: start: 19990101
  4. SEROXAT [Concomitant]
     Dates: start: 20050101
  5. SPIRIVA [Concomitant]
     Dates: start: 20060901
  6. VOLTAREN [Concomitant]
     Dates: start: 20061228, end: 20070119
  7. CARBONATE CALCIUM [Concomitant]
  8. PANTOZOL                           /01263202/ [Concomitant]
     Dates: start: 20060101
  9. ASPIRIN [Concomitant]
     Dates: start: 20040101

REACTIONS (4)
  - ANAEMIA [None]
  - COLITIS [None]
  - DRUG TOXICITY [None]
  - RENAL FAILURE ACUTE [None]
